FAERS Safety Report 5260001-0 (Version None)
Quarter: 2007Q1

REPORT INFORMATION
  Report Type: 
  Country: None (occurrence: None)
  Receive Date: 20070309
  Receipt Date: 20060130
  Transmission Date: 20070707
  Serious: No
  Sender: FDA-Public Use
  Company Number: US-GLAXOSMITHKLINE-A0591192A

PATIENT

DRUGS (1)
  1. NICORETTE [Suspect]
     Dates: start: 20051228

REACTIONS (3)
  - MALAISE [None]
  - NICOTINE DEPENDENCE [None]
  - PYREXIA [None]
